FAERS Safety Report 13426716 (Version 1)
Quarter: 2017Q2

REPORT INFORMATION
  Report Type: Spontaneous
  Country: GB (occurrence: GB)
  Receive Date: 20170411
  Receipt Date: 20170411
  Transmission Date: 20170830
  Serious: Yes (Life-Threatening, Other)
  Sender: FDA-Public Use
  Company Number: GB-CONCORDIA PHARMACEUTICALS INC.-GSH201704-002249

PATIENT
  Age: 26 Year
  Sex: Female

DRUGS (19)
  1. PREDNISOLONE. [Suspect]
     Active Substance: PREDNISOLONE
     Indication: SYSTEMIC LUPUS ERYTHEMATOSUS
     Route: 048
  2. PREDNISOLONE. [Suspect]
     Active Substance: PREDNISOLONE
     Dates: start: 201601
  3. PREDNISOLONE. [Suspect]
     Active Substance: PREDNISOLONE
     Dates: start: 201603
  4. TACROLIMUS. [Suspect]
     Active Substance: TACROLIMUS
     Indication: SYSTEMIC LUPUS ERYTHEMATOSUS
  5. MYCOPHENOLATE MOFETIL. [Suspect]
     Active Substance: MYCOPHENOLATE MOFETIL
     Dates: start: 201605
  6. PREDNISOLONE. [Suspect]
     Active Substance: PREDNISOLONE
  7. MYCOPHENOLATE MOFETIL. [Suspect]
     Active Substance: MYCOPHENOLATE MOFETIL
  8. PREDNISOLONE. [Suspect]
     Active Substance: PREDNISOLONE
  9. PREDNISOLONE. [Suspect]
     Active Substance: PREDNISOLONE
     Dates: start: 201509
  10. METHYLPREDNISOLONE. [Suspect]
     Active Substance: METHYLPREDNISOLONE
     Indication: SYSTEMIC LUPUS ERYTHEMATOSUS
     Route: 042
  11. HYDROXYCHLOROQUINE [Suspect]
     Active Substance: HYDROXYCHLOROQUINE
     Indication: SYSTEMIC LUPUS ERYTHEMATOSUS
     Dates: start: 201506
  12. TACROLIMUS. [Suspect]
     Active Substance: TACROLIMUS
     Dates: start: 201601
  13. RITUXIMAB [Suspect]
     Active Substance: RITUXIMAB
     Indication: SYSTEMIC LUPUS ERYTHEMATOSUS
  14. PREDNISOLONE. [Suspect]
     Active Substance: PREDNISOLONE
  15. AZATHIOPRINE. [Suspect]
     Active Substance: AZATHIOPRINE
     Indication: SYSTEMIC LUPUS ERYTHEMATOSUS
  16. AZATHIOPRINE. [Suspect]
     Active Substance: AZATHIOPRINE
  17. MYCOPHENOLATE MOFETIL. [Suspect]
     Active Substance: MYCOPHENOLATE MOFETIL
     Indication: SYSTEMIC LUPUS ERYTHEMATOSUS
     Dates: start: 201510
  18. MYCOPHENOLATE MOFETIL. [Suspect]
     Active Substance: MYCOPHENOLATE MOFETIL
     Dates: start: 201606
  19. PREDNISOLONE. [Suspect]
     Active Substance: PREDNISOLONE

REACTIONS (6)
  - Sepsis [Unknown]
  - Exposure during pregnancy [Unknown]
  - Gestational diabetes [Unknown]
  - Staphylococcal sepsis [Unknown]
  - Drug ineffective [Unknown]
  - Glucose tolerance impaired [Recovered/Resolved]
